FAERS Safety Report 20515557 (Version 2)
Quarter: 2022Q1

REPORT INFORMATION
  Report Type: Spontaneous
  Country: GB (occurrence: GB)
  Receive Date: 20220224
  Receipt Date: 20220302
  Transmission Date: 20220423
  Serious: No
  Sender: FDA-Public Use
  Company Number: GB-JNJFOC-20220246702

PATIENT
  Sex: Female

DRUGS (14)
  1. FENTANYL [Suspect]
     Active Substance: FENTANYL
     Indication: Back pain
     Dosage: USING FOR A LONG TIME; USES THE 25MCG AND 12MCG PATCHES?STRENGTH: 12.00 MCG/HR
     Route: 062
  2. FENTANYL [Suspect]
     Active Substance: FENTANYL
  3. FENTANYL [Suspect]
     Active Substance: FENTANYL
  4. FENTANYL [Suspect]
     Active Substance: FENTANYL
  5. FENTANYL [Suspect]
     Active Substance: FENTANYL
  6. FENTANYL [Suspect]
     Active Substance: FENTANYL
  7. FENTANYL [Suspect]
     Active Substance: FENTANYL
  8. FENTANYL [Suspect]
     Active Substance: FENTANYL
     Indication: Back pain
     Dosage: STRENGTH: 25.00 MCG/HR
     Route: 062
  9. FENTANYL [Suspect]
     Active Substance: FENTANYL
  10. FENTANYL [Suspect]
     Active Substance: FENTANYL
  11. FENTANYL [Suspect]
     Active Substance: FENTANYL
  12. FENTANYL [Suspect]
     Active Substance: FENTANYL
  13. FENTANYL [Suspect]
     Active Substance: FENTANYL
  14. FENTANYL [Suspect]
     Active Substance: FENTANYL

REACTIONS (2)
  - Application site hypersensitivity [Unknown]
  - Product adhesion issue [Unknown]
